FAERS Safety Report 4950959-9 (Version None)
Quarter: 2006Q1

REPORT INFORMATION
  Report Type: 
  Country: None (occurrence: None)
  Receive Date: 20060316
  Receipt Date: 20060310
  Transmission Date: 20060701
  Serious: Yes (Hospitalization)
  Sender: FDA-Public Use
  Company Number: FR-2006-005357

PATIENT
  Age: 34 Year
  Sex: Male

DRUGS (3)
  1. ULTRAVIST 370 [Suspect]
     Indication: ANGIOGRAM
     Dosage: 1 DOSE, INTRAVENOUS
     Route: 042
     Dates: start: 20060215, end: 20060215
  2. ATORVASTATIN CALCIUM [Concomitant]
  3. PERFALGAN [Concomitant]

REACTIONS (2)
  - DYSPHAGIA [None]
  - HYPERSENSITIVITY [None]
